FAERS Safety Report 18412859 (Version 2)
Quarter: 2020Q4

REPORT INFORMATION
  Report Type: Spontaneous
  Country: US (occurrence: US)
  Receive Date: 20201022
  Receipt Date: 20201202
  Transmission Date: 20210114
  Serious: No
  Sender: FDA-Public Use
  Company Number: US-JNJFOC-20201023331

PATIENT
  Age: 70 Year
  Sex: Male
  Weight: 63.56 kg

DRUGS (2)
  1. AMPYRA [Concomitant]
     Active Substance: DALFAMPRIDINE
     Indication: PRODUCT USED FOR UNKNOWN INDICATION
     Route: 065
  2. MENS ROGAINE EXTRA STRENGTH [Suspect]
     Active Substance: MINOXIDIL
     Indication: ALOPECIA
     Dosage: HALF A CAPFUL 2 TIMES A DAY OR ONCE A DAY. DATE OF LAST ADMINISTRATION: 13-OCT-2020
     Route: 061
     Dates: start: 20200921

REACTIONS (7)
  - Application site pain [Unknown]
  - Application site irritation [Unknown]
  - Inappropriate schedule of product administration [Unknown]
  - Application site erythema [Recovering/Resolving]
  - Underdose [Unknown]
  - Application site pruritus [Recovering/Resolving]
  - Application site dryness [Recovering/Resolving]

NARRATIVE: CASE EVENT DATE: 2020
